FAERS Safety Report 13008819 (Version 2)
Quarter: 2017Q1

REPORT INFORMATION
  Report Type: Report from Study
  Country: US (occurrence: US)
  Receive Date: 20161208
  Receipt Date: 20170117
  Transmission Date: 20170428
  Serious: Yes (Other)
  Sender: FDA-Public Use
  Company Number: US-MALLINCKRODT-T201606213

PATIENT
  Age: 73 Year
  Sex: Female

DRUGS (2)
  1. REPOSITORY CORTICOTROPIN INJECTION [Suspect]
     Active Substance: CORTICOTROPIN
     Indication: PROTEINURIA
     Dosage: 80 UNITS / 1 ML,  2 TIMES PER WEEK (TUESDAY AND FRIDAY)
     Route: 058
     Dates: start: 20161118
  2. REPOSITORY CORTICOTROPIN INJECTION [Suspect]
     Active Substance: CORTICOTROPIN
     Indication: NEPHROTIC SYNDROME

REACTIONS (8)
  - Malaise [Recovering/Resolving]
  - Injection site pain [Not Recovered/Not Resolved]
  - Wheezing [Recovering/Resolving]
  - Cardiomegaly [Recovered/Resolved]
  - Cough [Recovering/Resolving]
  - Abdominal pain lower [Recovering/Resolving]
  - Pleural effusion [Unknown]
  - Abdominal discomfort [Recovering/Resolving]

NARRATIVE: CASE EVENT DATE: 201611
